FAERS Safety Report 21064089 (Version 1)
Quarter: 2022Q3

REPORT INFORMATION
  Report Type: Spontaneous
  Country: US (occurrence: None)
  Receive Date: 20220708
  Receipt Date: 20220708
  Transmission Date: 20221027
  Serious: Yes (Life-Threatening, Hospitalization)
  Sender: FDA-Public Use
  Company Number: None

PATIENT
  Age: 59 Year
  Sex: Female

DRUGS (1)
  1. CINACALCET [Suspect]
     Active Substance: CINACALCET
     Indication: Hyperparathyroidism primary
     Dosage: FREQUENCY : DAILY;?
     Route: 048
     Dates: start: 20220614, end: 20220624

REACTIONS (5)
  - Fall [None]
  - Blood pressure increased [None]
  - Memory impairment [None]
  - Disorientation [None]
  - Therapy cessation [None]

NARRATIVE: CASE EVENT DATE: 20220624
